FAERS Safety Report 9152633 (Version 2)
Quarter: 2013Q1

REPORT INFORMATION
  Report Type: Spontaneous
  Country: GB (occurrence: GB)
  Receive Date: 20130308
  Receipt Date: 20130326
  Transmission Date: 20140127
  Serious: Yes (Death, Other)
  Sender: FDA-Public Use
  Company Number: GB-MERCK-1303GBR002289

PATIENT
  Age: 52 Year
  Sex: Male
  Weight: 79.37 kg

DRUGS (10)
  1. ZOCOR [Suspect]
     Indication: BLOOD CHOLESTEROL INCREASED
     Dosage: 40 MG, HS
     Route: 048
     Dates: end: 20120607
  2. FLUOXETINE [Suspect]
     Indication: ANXIETY
     Dosage: 20 MG, UNK
  3. FLUOXETINE [Suspect]
     Indication: DEPRESSION
  4. MIRTAZAPINE [Suspect]
     Indication: DEPRESSION
     Dosage: UNK
     Route: 048
     Dates: end: 20120607
  5. MIRTAZAPINE [Suspect]
     Indication: ANXIETY
  6. ATENOLOL (+) CHLORTHALIDONE [Concomitant]
     Dosage: 12.5 MG, UNK
  7. LOSARTAN POTASSIUM [Concomitant]
     Dosage: 100 MG, UNK
  8. LOSEC (OMEPRAZOLE MAGNESIUM) [Concomitant]
  9. LOSEC (OMEPRAZOLE) [Concomitant]
  10. LOSEC (OMEPRAZOLE SODIUM) [Concomitant]

REACTIONS (8)
  - Completed suicide [Fatal]
  - Blood creatine phosphokinase increased [Unknown]
  - Inflammation [Unknown]
  - Pain in jaw [Not Recovered/Not Resolved]
  - Myalgia [Not Recovered/Not Resolved]
  - Muscle spasms [Not Recovered/Not Resolved]
  - Neck pain [Not Recovered/Not Resolved]
  - Paraesthesia [Not Recovered/Not Resolved]
